FAERS Safety Report 8681526 (Version 2)
Quarter: 2013Q1

REPORT INFORMATION
  Report Type: Spontaneous
  Country: BR (occurrence: BR)
  Receive Date: 20120725
  Receipt Date: 20130225
  Transmission Date: 20140127
  Serious: Yes (Hospitalization)
  Sender: FDA-Public Use
  Company Number: PHHY2011BR95139

PATIENT
  Sex: Female
  Weight: 84 kg

DRUGS (4)
  1. ENABLEX [Suspect]
     Indication: URINARY INCONTINENCE
     Dosage: 1 DF PER DAY
     Route: 048
  2. ENABLEX [Suspect]
     Dosage: 1 DF PER DAY
     Route: 048
  3. LASIX [Concomitant]
     Dosage: 0.5 DF, QD
     Route: 048
  4. BROMAZEPAM [Concomitant]
     Dosage: 2 DF, 1 TABLET IN THE MORNING AND 1 TABLET AT NIGHT
     Route: 048

REACTIONS (13)
  - Ovarian cancer [Recovered/Resolved]
  - Uterine cancer [Recovered/Resolved]
  - Menstruation irregular [Recovered/Resolved]
  - Breast neoplasm [Recovered/Resolved]
  - Abasia [Recovered/Resolved]
  - Fatigue [Unknown]
  - Micturition urgency [Recovered/Resolved]
  - Nocturia [Recovered/Resolved]
  - Dysuria [Recovering/Resolving]
  - Pollakiuria [Recovered/Resolved]
  - Asthenia [Unknown]
  - Headache [Recovered/Resolved]
  - Drug ineffective [Recovering/Resolving]
